FAERS Safety Report 6614252-0 (Version None)
Quarter: 2010Q1

REPORT INFORMATION
  Report Type: 
  Country: None (occurrence: None)
  Receive Date: 20100304
  Receipt Date: 20100301
  Transmission Date: 20100710
  Serious: Yes (Other)
  Sender: FDA-Public Use
  Company Number: US-BRISTOL-MYERS SQUIBB COMPANY-14765036

PATIENT
  Age: 52 Year
  Sex: Male

DRUGS (17)
  1. EFAVIRENZ CAPS [Suspect]
     Route: 048
  2. DIDANOSINE [Suspect]
     Route: 065
  3. STAVUDINE [Suspect]
     Route: 065
  4. RALTEGRAVIR [Suspect]
     Dosage: RALTEGRAVIR POTASSIUM FORM = TABS
     Route: 048
  5. INDINAVIR SULFATE [Suspect]
     Dosage: FORM = CAPS
     Route: 048
  6. NEVIRAPINE [Suspect]
     Route: 065
  7. ABACAVIR SULFATE [Suspect]
     Route: 065
  8. LAMIVUDINE [Suspect]
     Route: 065
  9. DARUNAVIR [Suspect]
     Route: 065
  10. RITONAVIR [Suspect]
     Route: 065
  11. ETRAVIRINE [Suspect]
     Route: 065
  12. ZIDOVUDINE [Suspect]
     Route: 065
  13. DELAVIRDINE MESYLATE [Suspect]
     Route: 065
  14. SAQUINAVIR [Suspect]
     Route: 065
  15. NELFINAVIR MESYLATE [Suspect]
     Route: 065
  16. LOPINAVIR [Suspect]
     Route: 065
  17. TENOFOVIR [Suspect]
     Route: 065

REACTIONS (4)
  - DIPLOPIA [None]
  - EYELID PTOSIS [None]
  - LIPODYSTROPHY ACQUIRED [None]
  - PROGRESSIVE EXTERNAL OPHTHALMOPLEGIA [None]
